FAERS Safety Report 11096171 (Version 2)
Quarter: 2015Q2

REPORT INFORMATION
  Report Type: Spontaneous
  Country: US (occurrence: None)
  Receive Date: 20150505
  Receipt Date: 20150518
  Transmission Date: 20150821
  Serious: Yes (Other)
  Sender: FDA-Public Use
  Company Number: 2015AKN00250

PATIENT
  Age: 15 Year
  Sex: Male
  Weight: 115.6 kg

DRUGS (3)
  1. MULTIVITAMINS (UNSPECIFIED MULTIVITAMINS) [Concomitant]
  2. MYORISAN [Suspect]
     Active Substance: ISOTRETINOIN
     Indication: ACNE
     Dates: start: 201503, end: 20150406
  3. ALLEGRA [Concomitant]
     Active Substance: FEXOFENADINE HYDROCHLORIDE

REACTIONS (2)
  - Suicidal ideation [None]
  - Emotional disorder [None]

NARRATIVE: CASE EVENT DATE: 20150422
